FAERS Safety Report 14331167 (Version 3)
Quarter: 2021Q2

REPORT INFORMATION
  Report Type: Report from Study
  Country: CA (occurrence: CA)
  Receive Date: 20171228
  Receipt Date: 20210504
  Transmission Date: 20210716
  Serious: Yes (Death, Hospitalization)
  Sender: FDA-Public Use
  Company Number: CA-INCYTE CORPORATION-2017IN011068

PATIENT

DRUGS (4)
  1. EXJADE [Suspect]
     Active Substance: DEFERASIROX
     Indication: SPLENOMEGALY
     Dosage: 2000 MG, QD
     Route: 048
     Dates: start: 20171225
  2. JAKAVI [Suspect]
     Active Substance: RUXOLITINIB
     Dosage: 2 DF, QD (1 TAB IN THE MORNING, 1 TAB IN EVENING)
     Route: 048
     Dates: end: 202002
  3. JAKAVI [Suspect]
     Active Substance: RUXOLITINIB
     Indication: MYELOFIBROSIS
     Dosage: 40 MG, QD (2 TABS IN MORNING, 2 TABS IN EVENING)
     Route: 048
  4. EXJADE [Suspect]
     Active Substance: DEFERASIROX
     Indication: MYELOFIBROSIS

REACTIONS (9)
  - Renal disorder [Unknown]
  - Myelofibrosis [Fatal]
  - Malaise [Unknown]
  - Spleen disorder [Unknown]
  - Weight decreased [Unknown]
  - Hepatomegaly [Unknown]
  - Decreased appetite [Unknown]
  - Disease progression [Fatal]
  - Bladder disorder [Unknown]

NARRATIVE: CASE EVENT DATE: 20200401
